FAERS Safety Report 5864356-5 (Version None)
Quarter: 2008Q3

REPORT INFORMATION
  Report Type: 
  Country: None (occurrence: None)
  Receive Date: 20080829
  Receipt Date: 20080618
  Transmission Date: 20090109
  Serious: No
  Sender: FDA-Public Use
  Company Number: US-ABBOTT-08P-163-0458185-00

PATIENT
  Sex: Female
  Weight: 82 kg

DRUGS (3)
  1. SIMCOR [Suspect]
     Indication: BLOOD CHOLESTEROL INCREASED
     Route: 048
     Dates: start: 20080603, end: 20080609
  2. SIMCOR [Suspect]
     Dates: start: 20080617, end: 20080618
  3. UNKNOWN MEDICATION FOR DIABETES [Concomitant]
     Indication: DIABETES MELLITUS
     Route: 048

REACTIONS (2)
  - ABDOMINAL PAIN UPPER [None]
  - DIARRHOEA [None]
